FAERS Safety Report 11376120 (Version 4)
Quarter: 2015Q4

REPORT INFORMATION
  Report Type: Report from Study
  Country: US (occurrence: US)
  Receive Date: 20150813
  Receipt Date: 20151130
  Transmission Date: 20160304
  Serious: Yes (Hospitalization)
  Sender: FDA-Public Use
  Company Number: US-ALEXION PHARMACEUTICALS INC.-A201502967

PATIENT
  Age: 13 Year
  Sex: Female

DRUGS (2)
  1. SOLIRIS [Suspect]
     Active Substance: ECULIZUMAB
     Indication: OFF LABEL USE
  2. SOLIRIS [Suspect]
     Active Substance: ECULIZUMAB
     Indication: SYSTEMIC LUPUS ERYTHEMATOSUS
     Dosage: 1200 MG, Q2W
     Route: 042
     Dates: start: 20150730, end: 20151008

REACTIONS (6)
  - Cough [Recovered/Resolved]
  - Off label use [Recovered/Resolved]
  - Fall [Recovered/Resolved]
  - Pyrexia [Recovered/Resolved]
  - Fluid retention [Unknown]
  - Dyspnoea [Unknown]

NARRATIVE: CASE EVENT DATE: 20150730
